FAERS Safety Report 7619845-X (Version None)
Quarter: 2011Q3

REPORT INFORMATION
  Report Type: 
  Country: None (occurrence: None)
  Receive Date: 20110719
  Receipt Date: 20110713
  Transmission Date: 20111222
  Serious: Yes (Death, Other)
  Sender: FDA-Public Use
  Company Number: DE-BAYER-201044181GPV

PATIENT
  Age: 74 Year
  Sex: Male
  Weight: 92 kg

DRUGS (4)
  1. SORAFENIB [Suspect]
     Dosage: 400 MG (DAILY DOSE), , ORAL
     Route: 048
     Dates: start: 20091001, end: 20100204
  2. SORAFENIB [Suspect]
     Dosage: UNK
     Route: 048
     Dates: start: 20100318, end: 20100411
  3. SORAFENIB [Suspect]
     Dosage: UNK
     Route: 048
     Dates: start: 20100512, end: 20100603
  4. SORAFENIB [Suspect]
     Dosage: UNK
     Route: 048
     Dates: start: 20100623, end: 20100624

REACTIONS (2)
  - GENERAL PHYSICAL HEALTH DETERIORATION [None]
  - HEPATIC NEOPLASM MALIGNANT [None]
